FAERS Safety Report 9937794 (Version 1)
Quarter: 2014Q1

REPORT INFORMATION
  Report Type: Spontaneous
  Country: US (occurrence: US)
  Receive Date: 20140303
  Receipt Date: 20140303
  Transmission Date: 20141002
  Serious: No
  Sender: FDA-Public Use
  Company Number: US-BIOGENIDEC-2014BI016158

PATIENT
  Sex: Female

DRUGS (10)
  1. TECFIDERA [Suspect]
     Indication: MULTIPLE SCLEROSIS
  2. ADDERALL [Concomitant]
  3. VIT B COMPLEX [Concomitant]
  4. FISH OIL [Concomitant]
  5. GABAPENTIN [Concomitant]
  6. IRON [Concomitant]
  7. LORAZEPAM [Concomitant]
  8. MAGNESIUM [Concomitant]
  9. TRAZODONE [Concomitant]
  10. VITAMIN D [Concomitant]

REACTIONS (3)
  - Flatulence [Recovered/Resolved]
  - Rash pruritic [Recovered/Resolved]
  - Gastrointestinal disorder [Recovered/Resolved]
